FAERS Safety Report 25412834 (Version 1)
Quarter: 2025Q2

REPORT INFORMATION
  Report Type: Spontaneous
  Country: US (occurrence: None)
  Receive Date: 20250606
  Receipt Date: 20250606
  Transmission Date: 20250717
  Serious: Yes (Other)
  Sender: FDA-CTU
  Company Number: None

PATIENT
  Age: 49 Year
  Sex: Female
  Weight: 62.1 kg

DRUGS (8)
  1. MOUNJARO [Suspect]
     Active Substance: TIRZEPATIDE
     Indication: Weight decreased
     Dosage: OTHER FREQUENCY : ONCE A WEEK;?OTHER ROUTE : INJECTED INTO STOMACH SKIN;?
     Route: 050
  2. MIDODRINE [Suspect]
     Active Substance: MIDODRINE
  3. LAMICTAL [Concomitant]
     Active Substance: LAMOTRIGINE
  4. SEROQUEL [Concomitant]
     Active Substance: QUETIAPINE FUMARATE
  5. SYNTHROID [Concomitant]
     Active Substance: LEVOTHYROXINE SODIUM
  6. CYMBALTA [Concomitant]
     Active Substance: DULOXETINE HYDROCHLORIDE
  7. Ativan prn [Concomitant]
  8. Ambien prn [Concomitant]

REACTIONS (7)
  - Hypotension [None]
  - Tachycardia [None]
  - Nausea [None]
  - Chest pain [None]
  - Dizziness [None]
  - Fatigue [None]
  - Myocardial infarction [None]

NARRATIVE: CASE EVENT DATE: 20250131
